FAERS Safety Report 20692608 (Version 2)
Quarter: 2022Q4

REPORT INFORMATION
  Report Type: Spontaneous
  Country: IN (occurrence: IN)
  Receive Date: 20220409
  Receipt Date: 20221129
  Transmission Date: 20230113
  Serious: Yes (Hospitalization, Other)
  Sender: FDA-Public Use
  Company Number: IN-MLMSERVICE-20220329-3457790-1

PATIENT
  Age: 57 Year
  Sex: Female

DRUGS (2)
  1. ATORVASTATIN [Suspect]
     Active Substance: ATORVASTATIN
     Indication: Low density lipoprotein increased
     Dosage: UNKNOWN
     Route: 065
  2. ROSUVASTATIN [Suspect]
     Active Substance: ROSUVASTATIN
     Indication: Low density lipoprotein increased
     Route: 065

REACTIONS (4)
  - Accidental exposure to product [Unknown]
  - Myopathy [Recovering/Resolving]
  - Rhabdomyolysis [Recovering/Resolving]
  - Renal failure [Recovering/Resolving]
